FAERS Safety Report 16366486 (Version 1)
Quarter: 2019Q3

REPORT INFORMATION
  Report Type: Spontaneous
  Country: US (occurrence: US)
  Receive Date: 20190528
  Receipt Date: 20190528
  Transmission Date: 20191004
  Serious: No
  Sender: FDA-Public Use
  Company Number: None

PATIENT
  Age: 54 Year
  Sex: Female
  Weight: 103.5 kg

DRUGS (6)
  1. DICLOFENAC 75MG [Concomitant]
     Active Substance: DICLOFENAC
  2. SYNTHROID 175MCG, [Concomitant]
  3. CENTRUM VITAMINS LIQUID [Concomitant]
     Active Substance: VITAMINS
  4. ATORVASTATIN TABS 40MG GENERIC FOR LIPITOR TABS [Suspect]
     Active Substance: ATORVASTATIN
     Indication: HYPERLIPIDAEMIA
     Dosage: ?          QUANTITY:1 TABLET(S);?
     Route: 048
     Dates: start: 20190224, end: 20190524
  5. ATORVASTATIN 40MG [Concomitant]
     Active Substance: ATORVASTATIN
  6. TRAZADONE PRN [Concomitant]

REACTIONS (2)
  - Blood cholesterol increased [None]
  - Weight decreased [None]

NARRATIVE: CASE EVENT DATE: 20190517
